FAERS Safety Report 23984546 (Version 1)
Quarter: 2024Q2

REPORT INFORMATION
  Report Type: Spontaneous
  Country: GB (occurrence: GB)
  Receive Date: 20240618
  Receipt Date: 20240618
  Transmission Date: 20240715
  Serious: Yes (Other)
  Sender: FDA-Public Use
  Company Number: GB-Accord-430062

PATIENT
  Sex: Female

DRUGS (1)
  1. METHOTREXATE [Suspect]
     Active Substance: METHOTREXATE
     Indication: Vasculitis
     Dosage: STRENGTH: 7.5MG

REACTIONS (6)
  - Eye swelling [Unknown]
  - Brain oedema [Unknown]
  - Swelling face [Unknown]
  - Pain [Unknown]
  - Spinal cord oedema [Unknown]
  - Off label use [Unknown]
